FAERS Safety Report 22606177 (Version 1)
Quarter: 2023Q2

REPORT INFORMATION
  Report Type: Spontaneous
  Country: US (occurrence: None)
  Receive Date: 20230614
  Receipt Date: 20230614
  Transmission Date: 20230721
  Serious: Yes (Other)
  Sender: FDA-Public Use
  Company Number: None

PATIENT
  Age: 61 Year
  Sex: Female

DRUGS (23)
  1. XOLAIR [Suspect]
     Active Substance: OMALIZUMAB
     Indication: Asthma
     Dosage: FREQUENCY : MONTHLY;?
     Route: 058
     Dates: start: 20211103
  2. ALBUTEROL AER HFA [Concomitant]
  3. ALBUTERNOL NEB [Concomitant]
  4. AUVI-Q INJ [Concomitant]
  5. AZELASTINE SPR [Concomitant]
  6. BUDESONIDE SUS [Concomitant]
  7. CLARITHROMYC [Concomitant]
  8. DIVIGEL GEL [Concomitant]
  9. SULERA AER [Concomitant]
  10. FLUTICASONE SPR [Concomitant]
  11. HYDROCHLOROTHIAZIDE [Concomitant]
     Active Substance: HYDROCHLOROTHIAZIDE
  12. IPRATROPIUM SPR [Concomitant]
  13. IPRATROPIUM/SOL ALBUTER [Concomitant]
  14. IVERMECTIN [Concomitant]
     Active Substance: IVERMECTIN
  15. LISINOPRIL [Concomitant]
     Active Substance: LISINOPRIL
  16. MECLIZINE [Concomitant]
     Active Substance: MECLIZINE HYDROCHLORIDE
  17. OMEPRAZOLE [Concomitant]
     Active Substance: OMEPRAZOLE
  18. PANTOPRAZOLE [Concomitant]
     Active Substance: PANTOPRAZOLE
  19. PREDNISONE [Concomitant]
     Active Substance: PREDNISONE
  20. PROGESTERONE [Concomitant]
     Active Substance: PROGESTERONE
  21. SYNTHROID [Concomitant]
     Active Substance: LEVOTHYROXINE SODIUM
  22. TRANEXAMIC ACID [Concomitant]
     Active Substance: TRANEXAMIC ACID
  23. VALACYCLOVIR TAB [Concomitant]

REACTIONS (1)
  - Breast cancer stage I [None]

NARRATIVE: CASE EVENT DATE: 20230531
